FAERS Safety Report 4398358-5 (Version None)
Quarter: 2004Q3

REPORT INFORMATION
  Report Type: 
  Country: None (occurrence: None)
  Receive Date: 20040714
  Receipt Date: 20040714
  Transmission Date: 20050211
  Serious: Yes (Other)
  Sender: FDA-Public Use
  Company Number: None

PATIENT
  Age: 45 Year
  Sex: Male
  Weight: 90.4 kg

DRUGS (8)
  1. HYDROCHLOROTHIAZIDE [Suspect]
     Indication: NEPHROLITHIASIS
     Dosage: 25 MG PO DAILY
     Route: 048
     Dates: start: 20011011, end: 20020416
  2. HYDROCHLOROTHIAZIDE [Suspect]
     Indication: PROPHYLAXIS
     Dosage: 25 MG PO DAILY
     Route: 048
     Dates: start: 20011011, end: 20020416
  3. RANITIDINE [Concomitant]
  4. HYDROCODONE 5 MG/ACETAMENOPHEN 500MG [Concomitant]
  5. CLOTRIMAZOLE [Concomitant]
  6. VENLAFARINE [Concomitant]
  7. IBUPROFEN [Concomitant]
  8. CIGARRETTES [Concomitant]

REACTIONS (2)
  - ENAMEL ANOMALY [None]
  - TOOTH DISORDER [None]
